FAERS Safety Report 25889558 (Version 1)
Quarter: 2025Q4

REPORT INFORMATION
  Report Type: Spontaneous
  Country: JP (occurrence: JP)
  Receive Date: 20251007
  Receipt Date: 20251007
  Transmission Date: 20260118
  Serious: Yes (Other)
  Sender: ROCHE
  Company Number: JP-CHUGAI-2025031154

PATIENT
  Age: 9 Decade

DRUGS (2)
  1. VABYSMO [Suspect]
     Active Substance: FARICIMAB-SVOA
     Indication: Neovascular age-related macular degeneration
     Dosage: UNK, STRENGTH 120 MG/ML
     Route: 031
     Dates: start: 20250911
  2. KENACORT [Suspect]
     Active Substance: TRIAMCINOLONE
     Indication: Neovascular age-related macular degeneration
     Dosage: UNK
     Route: 065

REACTIONS (2)
  - Retinal haemorrhage [Not Recovered/Not Resolved]
  - Polypoidal choroidal vasculopathy [Unknown]

NARRATIVE: CASE EVENT DATE: 20250926
